FAERS Safety Report 5493173-3 (Version None)
Quarter: 2007Q4

REPORT INFORMATION
  Report Type: 
  Country: None (occurrence: None)
  Receive Date: 20071022
  Receipt Date: 20071022
  Transmission Date: 20080405
  Serious: Yes (Life-Threatening, Disabling, Other)
  Sender: FDA-Public Use
  Company Number: None

PATIENT
  Sex: Female

DRUGS (2)
  1. VIOXX [Suspect]
     Indication: CARDIAC DISORDER
     Dosage: 2 TABLETS /ONCE DAILY FREQUENCY
     Dates: start: 20021025
  2. VIOXX [Suspect]
     Indication: BACK PAIN
     Dosage: 2 TABLETS/ONCE DAILY FREQUENCY
     Route: 047
     Dates: start: 20040326

REACTIONS (3)
  - CARDIAC DISORDER [None]
  - HEART RATE INCREASED [None]
  - PAIN [None]
